FAERS Safety Report 4878658-2 (Version None)
Quarter: 2006Q1

REPORT INFORMATION
  Report Type: 
  Country: None (occurrence: None)
  Receive Date: 20060110
  Receipt Date: 20051230
  Transmission Date: 20060701
  Serious: Yes (Hospitalization)
  Sender: FDA-Public Use
  Company Number: KII-2005-0020566

PATIENT
  Age: 4 Year
  Sex: Male

DRUGS (6)
  1. MORPHINE SULFATE [Suspect]
     Indication: ACCIDENTAL EXPOSURE
     Dosage: SEE TEXT, ORAL
     Route: 048
     Dates: start: 20051204, end: 20051204
  2. MUSCLE RELAXANTS() [Suspect]
     Indication: ACCIDENTAL EXPOSURE
     Dosage: SEE TEXT, ORAL
     Route: 048
     Dates: start: 20051204, end: 20051204
  3. ANTINEOPLASTICS() [Suspect]
     Indication: ACCIDENTAL EXPOSURE
     Dosage: SEE TEXT, ORAL
     Route: 048
     Dates: start: 20051204, end: 20051204
  4. ANTIPSYCHOTICS() [Suspect]
     Indication: ACCIDENTAL EXPOSURE
     Dosage: SEE TEXT, ORAL
     Route: 048
     Dates: start: 20051204, end: 20051204
  5. VALPROIC ACID [Suspect]
     Indication: ACCIDENTAL EXPOSURE
     Dosage: SEE TEXT, ORAL
     Route: 048
     Dates: start: 20051204, end: 20051204
  6. BUPROPION HCL [Suspect]
     Indication: ACCIDENTAL EXPOSURE
     Dosage: SEE TEXT, ORAL
     Route: 048
     Dates: start: 20051204, end: 20051204

REACTIONS (7)
  - ACCIDENTAL DRUG INTAKE BY CHILD [None]
  - AGITATION [None]
  - DYSKINESIA [None]
  - HALLUCINATION, VISUAL [None]
  - INCOHERENT [None]
  - NYSTAGMUS [None]
  - TARDIVE DYSKINESIA [None]
